FAERS Safety Report 4274014-9 (Version None)
Quarter: 2004Q1

REPORT INFORMATION
  Report Type: 
  Country: None (occurrence: None)
  Receive Date: 20040115
  Receipt Date: 20040105
  Transmission Date: 20041129
  Serious: Yes (Disabling)
  Sender: FDA-Public Use
  Company Number: 2004CG00018

PATIENT
  Age: 90 Year
  Sex: Female

DRUGS (2)
  1. XYLOCAINE [Suspect]
     Indication: LOCAL ANAESTHESIA
     Dosage: 80 MG RNB
     Dates: start: 20020227, end: 20020227
  2. BUPIVACAINE [Suspect]
     Indication: LOCAL ANAESTHESIA
     Dosage: 20 MG RNB
     Dates: start: 20020227, end: 20020227

REACTIONS (2)
  - DIPLOPIA [None]
  - OPHTHALMOPLEGIA [None]
